FAERS Safety Report 10156380 (Version 2)
Quarter: 2014Q2

REPORT INFORMATION
  Report Type: Report from Study
  Country: CA (occurrence: CA)
  Receive Date: 20140507
  Receipt Date: 20140609
  Transmission Date: 20141212
  Serious: Yes (Hospitalization)
  Sender: FDA-Public Use
  Company Number: CA-BRISTOL-MYERS SQUIBB COMPANY-20696845

PATIENT
  Age: 62 Year
  Sex: Female

DRUGS (2)
  1. ORENCIA [Suspect]
     Indication: RHEUMATOID ARTHRITIS
     Dosage: 1DF:750 UNIT NOS.?30-APR-2014:CANCELLED?LATEST DOSE:02APR14?750MG
     Route: 042
     Dates: start: 20120926
  2. ADVIL [Concomitant]

REACTIONS (3)
  - Angina unstable [Unknown]
  - Pleural effusion [Unknown]
  - Diabetes mellitus [Unknown]
